FAERS Safety Report 9280800 (Version 2)
Quarter: 2014Q1

REPORT INFORMATION
  Report Type: Spontaneous
  Country: US (occurrence: US)
  Receive Date: 20130509
  Receipt Date: 20140304
  Transmission Date: 20141002
  Serious: No
  Sender: FDA-Public Use
  Company Number: US-PFIZER INC-2013142961

PATIENT
  Age: 57 Year
  Sex: Female
  Weight: 72.56 kg

DRUGS (9)
  1. CELEBREX [Suspect]
     Indication: ARTHRITIS
     Dosage: 200 MG, 2X/DAY
     Route: 048
     Dates: end: 201304
  2. LYRICA [Concomitant]
     Indication: FIBROMYALGIA
     Dosage: 50 MG, 3X/DAY
  3. PREMARIN [Concomitant]
     Indication: HOT FLUSH
     Dosage: 0.3 MG, 1X/DAY
     Route: 048
  4. ATENOLOL [Concomitant]
     Indication: HYPERTENSION
     Dosage: UNK
  5. ENALAPRIL [Concomitant]
     Indication: HYPERTENSION
     Dosage: UNK
  6. ROBAXIN [Concomitant]
     Dosage: UNK
  7. LASIX [Concomitant]
     Dosage: UNK
  8. NORCO [Concomitant]
     Dosage: UNK
  9. EFEXOR XR [Concomitant]
     Indication: DEPRESSION
     Dosage: 150 MG, 1X/DAY

REACTIONS (2)
  - Movement disorder [Not Recovered/Not Resolved]
  - Gait disturbance [Not Recovered/Not Resolved]
